FAERS Safety Report 8985749 (Version 2)
Quarter: 2013Q1

REPORT INFORMATION
  Report Type: Spontaneous
  Country: US (occurrence: US)
  Receive Date: 20121226
  Receipt Date: 20130128
  Transmission Date: 20140127
  Serious: Yes (Other)
  Sender: FDA-Public Use
  Company Number: US-ASTRAZENECA-2012SE94236

PATIENT
  Age: 37 Year
  Sex: Female

DRUGS (4)
  1. SEROQUEL XR [Suspect]
     Indication: BIPOLAR DISORDER
     Route: 048
     Dates: end: 201212
  2. TRAMADOL [Concomitant]
     Dosage: UNKNOWN
  3. TRAMADOL [Concomitant]
     Dosage: DOSE LOWERED, UNKNOWN
  4. INSULIN [Concomitant]

REACTIONS (1)
  - Myoclonus [Recovered/Resolved]
